FAERS Safety Report 5885586-2 (Version None)
Quarter: 2008Q3

REPORT INFORMATION
  Report Type: 
  Country: None (occurrence: None)
  Receive Date: 20080916
  Receipt Date: 20080902
  Transmission Date: 20090109
  Serious: Yes (Life-Threatening)
  Sender: FDA-Public Use
  Company Number: US-AMGEN-US070159

PATIENT
  Age: 70 Year
  Sex: Male

DRUGS (12)
  1. ETANERCEPT [Suspect]
     Indication: WEGENER'S GRANULOMATOSIS
     Route: 058
     Dates: end: 20030901
  2. PREDNISONE TAB [Concomitant]
  3. METHOTREXATE [Concomitant]
  4. FOLIC ACID [Concomitant]
  5. BACTRIM [Concomitant]
  6. GLUCOTROL [Concomitant]
  7. AVANDIA [Concomitant]
  8. PRAVACHOL [Concomitant]
  9. HYDROCHLOROTHIAZIDE [Concomitant]
  10. DYNACIRC [Concomitant]
  11. ALPHAGAN [Concomitant]
     Route: 047
  12. TRAVATAN [Concomitant]
     Route: 047

REACTIONS (1)
  - PROSTATE CANCER [None]
